FAERS Safety Report 20574925 (Version 2)
Quarter: 2022Q1

REPORT INFORMATION
  Report Type: Spontaneous
  Country: US (occurrence: US)
  Receive Date: 20220310
  Receipt Date: 20220311
  Transmission Date: 20220423
  Serious: Yes (Other)
  Sender: FDA-Public Use
  Company Number: US-JNJFOC-20220306612

PATIENT
  Age: 73 Year
  Sex: Male

DRUGS (7)
  1. TYLENOL [Suspect]
     Active Substance: ACETAMINOPHEN
     Indication: Product used for unknown indication
     Route: 065
  2. IMBRUVICA [Suspect]
     Active Substance: IBRUTINIB
     Indication: Waldenstrom^s macroglobulinaemia
     Dosage: LOT NO AND EXP DATES: 1154897 - FEB2024 / 1152477 - DEC2023
     Route: 048
     Dates: start: 20200920
  3. IMBRUVICA [Suspect]
     Active Substance: IBRUTINIB
     Dosage: LOT NO AND EXP DATES: 1154897 - FEB2024 / 1152477 - DEC2023
     Route: 048
     Dates: start: 202112
  4. IMBRUVICA [Suspect]
     Active Substance: IBRUTINIB
     Dosage: LOT NO AND EXP DATES: 1154897 - FEB2024 / 1152477 - DEC2023
     Route: 048
     Dates: start: 20200920
  5. FOSAMAX [Suspect]
     Active Substance: ALENDRONATE SODIUM
     Indication: Product used for unknown indication
     Route: 065
     Dates: start: 2020, end: 202202
  6. COVID-19 VACCINE [Concomitant]
     Indication: COVID-19 immunisation
     Dosage: BOOSTER DOSE
     Route: 030
  7. LOSARTAN [Concomitant]
     Active Substance: LOSARTAN
     Indication: Product used for unknown indication
     Route: 065

REACTIONS (7)
  - Hypertension [Not Recovered/Not Resolved]
  - Arthralgia [Not Recovered/Not Resolved]
  - Nausea [Not Recovered/Not Resolved]
  - Dyspepsia [Recovering/Resolving]
  - Pain in extremity [Recovering/Resolving]
  - Weight increased [Recovering/Resolving]
  - Stomatitis [Unknown]

NARRATIVE: CASE EVENT DATE: 20211001
